FAERS Safety Report 4346022-0 (Version None)
Quarter: 2004Q2

REPORT INFORMATION
  Report Type: 
  Country: None (occurrence: None)
  Receive Date: 20040423
  Receipt Date: 20040423
  Transmission Date: 20050107
  Serious: Yes (Hospitalization)
  Sender: FDA-Public Use
  Company Number: None

PATIENT
  Age: 68 Year
  Sex: Female

DRUGS (3)
  1. TAXOTERE [Suspect]
     Indication: NON-SMALL CELL LUNG CANCER
     Dosage: 33 MG WKLY AND 3 Q INTRAVENOUS
     Route: 042
     Dates: start: 20031210, end: 20030316
  2. CARBOPLATIN [Suspect]
     Indication: NON-SMALL CELL LUNG CANCER
     Dosage: 170 MG WKLY AND 3 Q INTRAVENOUS
     Route: 042
     Dates: start: 20031210, end: 20040316
  3. RADIATION THERAPY [Concomitant]

REACTIONS (5)
  - BRONCHOPULMONARY ASPERGILLOSIS [None]
  - CYST DRAINAGE [None]
  - LUNG CYST BENIGN [None]
  - PNEUMONIA [None]
  - PYREXIA [None]
